FAERS Safety Report 7125889-7 (Version None)
Quarter: 2010Q4

REPORT INFORMATION
  Report Type: 
  Country: None (occurrence: None)
  Receive Date: 20101129
  Receipt Date: 20101116
  Transmission Date: 20110411
  Serious: Yes (Other)
  Sender: FDA-Public Use
  Company Number: US-JNJFOC-20101107287

PATIENT
  Sex: Female
  Weight: 108.86 kg

DRUGS (7)
  1. FENTANYL CITRATE [Suspect]
     Indication: ARTHRALGIA
     Route: 062
  2. FENTANYL-100 [Suspect]
     Indication: ARTHRALGIA
     Route: 062
  3. ZANAFLEX [Concomitant]
     Indication: MUSCLE RELAXANT THERAPY
     Dosage: 5 TABLETS AS NEEDED
     Route: 048
  4. IBUPROFEN [Concomitant]
     Indication: PAIN
     Dosage: AS NEEDED
     Route: 048
  5. LORAZEPAM [Concomitant]
     Indication: ANXIETY
     Dosage: AS NEEDED
     Route: 048
  6. TRAZODONE [Concomitant]
     Indication: SLEEP DISORDER
     Dosage: AT BED TIME
     Route: 048
  7. TRAZODONE [Concomitant]
     Indication: PAIN
     Dosage: AT BED TIME
     Route: 048

REACTIONS (9)
  - ABNORMAL LOSS OF WEIGHT [None]
  - APPLICATION SITE EROSION [None]
  - BREAKTHROUGH PAIN [None]
  - DRUG ADMINISTERED AT INAPPROPRIATE SITE [None]
  - INFLUENZA [None]
  - JOINT DISLOCATION [None]
  - LOSS OF CONSCIOUSNESS [None]
  - PRODUCT ADHESION ISSUE [None]
  - WRONG TECHNIQUE IN DRUG USAGE PROCESS [None]
